FAERS Safety Report 13177220 (Version 1)
Quarter: 2017Q1

REPORT INFORMATION
  Report Type: Report from Study
  Country: US (occurrence: US)
  Receive Date: 20170201
  Receipt Date: 20170201
  Transmission Date: 20170428
  Serious: No
  Sender: FDA-Public Use
  Company Number: US-EXELIXIS-CABO-16007446

PATIENT
  Sex: Male

DRUGS (5)
  1. NORCO [Concomitant]
     Active Substance: ACETAMINOPHEN\HYDROCODONE BITARTRATE
  2. FENTANYL. [Concomitant]
     Active Substance: FENTANYL
  3. CABOMETYX [Suspect]
     Active Substance: CABOZANTINIB S-MALATE
     Indication: RENAL CANCER
     Dosage: 40 MG, QD
     Route: 048
     Dates: start: 20161029
  4. DEPAKOTE [Concomitant]
     Active Substance: DIVALPROEX SODIUM
  5. MOTRIN [Concomitant]
     Active Substance: IBUPROFEN

REACTIONS (3)
  - Diarrhoea [Unknown]
  - Dry mouth [Unknown]
  - Nausea [Unknown]
